FAERS Safety Report 9732826 (Version 2)
Quarter: 2015Q3

REPORT INFORMATION
  Report Type: Spontaneous
  Country: US (occurrence: US)
  Receive Date: 20131204
  Receipt Date: 20150804
  Transmission Date: 20151125
  Serious: No
  Sender: FDA-Public Use
  Company Number: US-GILEAD-2009-0021160

PATIENT
  Age: 78 Year
  Sex: Female
  Weight: 57.61 kg

DRUGS (32)
  1. ACTONEL [Concomitant]
     Active Substance: RISEDRONATE SODIUM
  2. REFRESH EYE DROPS [Concomitant]
  3. FLEXERIL [Concomitant]
     Active Substance: CYCLOBENZAPRINE HYDROCHLORIDE
  4. BENADRYL [Concomitant]
     Active Substance: DIPHENHYDRAMINE HYDROCHLORIDE
  5. FOLIC ACID. [Concomitant]
     Active Substance: FOLIC ACID
  6. GLUCOSAMINE/CHOND [Concomitant]
  7. REVATIO [Concomitant]
     Active Substance: SILDENAFIL CITRATE
  8. ASPIRIN. [Concomitant]
     Active Substance: ASPIRIN
  9. ARICEPT [Concomitant]
     Active Substance: DONEPEZIL HYDROCHLORIDE
  10. NORVASC [Concomitant]
     Active Substance: AMLODIPINE BESYLATE
  11. BUMEX [Concomitant]
     Active Substance: BUMETANIDE
  12. MAG CITRATE [Concomitant]
  13. MEDROL [Concomitant]
     Active Substance: METHYLPREDNISOLONE
  14. AMBIEN CR [Concomitant]
     Active Substance: ZOLPIDEM TARTRATE
  15. IRON [Concomitant]
     Active Substance: IRON
  16. MIRAPEX [Concomitant]
     Active Substance: PRAMIPEXOLE DIHYDROCHLORIDE
  17. MULTIVITAMIN [Concomitant]
     Active Substance: VITAMINS
  18. VITAMIN C [Concomitant]
     Active Substance: ASCORBIC ACID
  19. LISINOPRIL. [Concomitant]
     Active Substance: LISINOPRIL
  20. PREDNISONE. [Concomitant]
     Active Substance: PREDNISONE
  21. PARACETAMOL/HYDROCODONE BITARTRATE [Concomitant]
  22. AZATHIOPRINE. [Concomitant]
     Active Substance: AZATHIOPRINE
  23. NASACORT AQ [Concomitant]
     Active Substance: TRIAMCINOLONE ACETONIDE
  24. CALCIUM [Concomitant]
     Active Substance: CALCIUM
  25. CELEBREX [Concomitant]
     Active Substance: CELECOXIB
  26. SYNTHROID [Concomitant]
     Active Substance: LEVOTHYROXINE SODIUM
  27. FISH OIL [Concomitant]
     Active Substance: FISH OIL
  28. PROTONIX [Concomitant]
     Active Substance: PANTOPRAZOLE SODIUM
  29. METHOTREXATE [Concomitant]
     Active Substance: METHOTREXATE
  30. CLONAZEPAM. [Concomitant]
     Active Substance: CLONAZEPAM
  31. LETAIRIS [Suspect]
     Active Substance: AMBRISENTAN
     Indication: PULMONARY ARTERIAL HYPERTENSION
     Route: 048
     Dates: start: 20080214
  32. PERCOCET [Concomitant]
     Active Substance: ACETAMINOPHEN\OXYCODONE HYDROCHLORIDE

REACTIONS (1)
  - Depression [Unknown]
